FAERS Safety Report 13681618 (Version 1)
Quarter: 2017Q2

REPORT INFORMATION
  Report Type: Spontaneous
  Country: US (occurrence: US)
  Receive Date: 20170623
  Receipt Date: 20170623
  Transmission Date: 20170830
  Serious: No
  Sender: FDA-Public Use
  Company Number: US-AUROBINDO-AUR-APL-2016-15020

PATIENT
  Age: 59 Year
  Sex: Female
  Weight: 63.39 kg

DRUGS (1)
  1. PENICILLIN V POTASSIUM TABLETS USP 250MG [Suspect]
     Active Substance: PENICILLIN V POTASSIUM
     Indication: RHEUMATIC FEVER
     Dosage: 250 MG, ONCE A DAY
     Route: 048
     Dates: start: 201604

REACTIONS (4)
  - Rash generalised [None]
  - Hypersensitivity [None]
  - Rash [Not Recovered/Not Resolved]
  - Product formulation issue [None]
